FAERS Safety Report 6536846-3 (Version None)
Quarter: 2010Q1

REPORT INFORMATION
  Report Type: 
  Country: None (occurrence: None)
  Receive Date: 20100107
  Receipt Date: 20091223
  Transmission Date: 20100710
  Serious: Yes (Death)
  Sender: FDA-Public Use
  Company Number: 015072

PATIENT
  Age: 66 Year
  Sex: Male

DRUGS (2)
  1. PRIALT [Suspect]
     Indication: PAIN
     Dosage: 0.038 UG, ONCE/HOUR, INTRATHECAL
     Route: 037
     Dates: start: 20090918
  2. LIORESAL [Concomitant]

REACTIONS (2)
  - CYSTITIS [None]
  - PNEUMONIA [None]
